FAERS Safety Report 14725998 (Version 1)
Quarter: 2018Q2

REPORT INFORMATION
  Report Type: Spontaneous
  Country: US (occurrence: US)
  Receive Date: 20180406
  Receipt Date: 20180406
  Transmission Date: 20180711
  Serious: Yes (Other)
  Sender: FDA-Public Use
  Company Number: US-CIPLA LTD.-2018US14586

PATIENT

DRUGS (4)
  1. CARBOPLATIN. [Suspect]
     Active Substance: CARBOPLATIN
     Indication: ADENOID CYSTIC CARCINOMA
     Dosage: AREA UNDER THE CURVE OF 5
     Route: 065
  2. DOXORUBICIN HYDROCHLORIDE. [Suspect]
     Active Substance: DOXORUBICIN HYDROCHLORIDE
     Dosage: 25 MG/M2, UNK
     Route: 065
  3. DOXORUBICIN HYDROCHLORIDE. [Suspect]
     Active Substance: DOXORUBICIN HYDROCHLORIDE
     Indication: ADENOID CYSTIC CARCINOMA
     Dosage: 25 MG/M2 PER DAY ON DAYS 1, 2, AND 3
     Route: 065
  4. CISPLATIN. [Suspect]
     Active Substance: CISPLATIN
     Indication: ADENOID CYSTIC CARCINOMA
     Dosage: 100 MG/M2 ON DAY 1
     Route: 065

REACTIONS (6)
  - Malignant neoplasm progression [Unknown]
  - Chronic kidney disease [Not Recovered/Not Resolved]
  - Inflammation [Recovered/Resolved]
  - Dry eye [Unknown]
  - Necrosis [Recovered/Resolved]
  - Acute kidney injury [Not Recovered/Not Resolved]
